FAERS Safety Report 5676568-4 (Version None)
Quarter: 2008Q1

REPORT INFORMATION
  Report Type: 
  Country: None (occurrence: None)
  Receive Date: 20080321
  Receipt Date: 20080321
  Transmission Date: 20080703
  Serious: Yes (Disabling)
  Sender: FDA-Public Use
  Company Number: None

PATIENT
  Sex: Female
  Weight: 53.0709 kg

DRUGS (3)
  1. BOTOX, ALLERGAN (I DON'T KNOW THE STRENGTH) [Suspect]
     Indication: MIGRAINE
     Dosage: EVERY 3 MTHS.
     Dates: start: 20070101
  2. BOTOX, ALLERGAN (I DON'T KNOW THE STRENGTH) [Suspect]
     Indication: MIGRAINE
     Dosage: EVERY 3 MTHS.
     Dates: start: 20070401
  3. BOTOX, ALLERGAN (I DON'T KNOW THE STRENGTH) [Suspect]
     Indication: MIGRAINE
     Dosage: EVERY 3 MTHS.
     Dates: start: 20070703

REACTIONS (5)
  - ANXIETY [None]
  - ASTHENIA [None]
  - INFLUENZA LIKE ILLNESS [None]
  - MUSCLE TWITCHING [None]
  - PAIN [None]
